FAERS Safety Report 9699078 (Version 1)
Quarter: 2013Q4

REPORT INFORMATION
  Report Type: Spontaneous
  Country: US (occurrence: US)
  Receive Date: 20131120
  Receipt Date: 20131120
  Transmission Date: 20140711
  Serious: Yes (Hospitalization)
  Sender: FDA-Public Use
  Company Number: US-FRI-1000051298

PATIENT
  Sex: Female

DRUGS (6)
  1. TUDORZA PRESSAIR [Suspect]
     Indication: CHRONIC OBSTRUCTIVE PULMONARY DISEASE
     Dosage: 400 MCG BID
     Route: 055
     Dates: start: 201311
  2. CARTIA [Concomitant]
     Indication: HYPERTENSION
  3. SYMBICORT [Concomitant]
     Indication: CHRONIC OBSTRUCTIVE PULMONARY DISEASE
  4. DESYREL [Concomitant]
  5. PLAVIX [Concomitant]
  6. BABY ASPIRIN [Concomitant]

REACTIONS (1)
  - Coronary artery occlusion [Recovered/Resolved]
